FAERS Safety Report 5059121-5 (Version None)
Quarter: 2006Q3

REPORT INFORMATION
  Report Type: 
  Country: None (occurrence: None)
  Receive Date: 20060718
  Receipt Date: 20060705
  Transmission Date: 20061208
  Serious: Yes (Hospitalization)
  Sender: FDA-Public Use
  Company Number: 2006PV015748

PATIENT
  Age: 27 Year
  Sex: Female
  Weight: 137.4399 kg

DRUGS (2)
  1. BYETTA [Suspect]
     Indication: INSULIN RESISTANCE
     Dosage: 5 MCG; BID; SC
     Route: 058
     Dates: start: 20060320, end: 20060511
  2. BYETTA [Suspect]
     Indication: INSULIN RESISTANCE
     Dosage: 5 MCG; BID; SC
     Route: 058
     Dates: start: 20060520

REACTIONS (10)
  - ACCIDENT AT WORK [None]
  - ENERGY INCREASED [None]
  - FALL [None]
  - INJECTION SITE BRUISING [None]
  - INJECTION SITE ERYTHEMA [None]
  - INJECTION SITE PAIN [None]
  - INJECTION SITE PRURITUS [None]
  - LIGAMENT RUPTURE [None]
  - THERAPEUTIC RESPONSE UNEXPECTED [None]
  - WEIGHT DECREASED [None]
